FAERS Safety Report 12532140 (Version 3)
Quarter: 2016Q3

REPORT INFORMATION
  Report Type: Spontaneous
  Country: US (occurrence: US)
  Receive Date: 20160706
  Receipt Date: 20160810
  Transmission Date: 20161109
  Serious: Yes (Hospitalization, Other)
  Sender: FDA-Public Use
  Company Number: US-SAOL THERAPEUTICS-2016SAO00076

PATIENT
  Age: 56 Year
  Sex: Male

DRUGS (4)
  1. MORPHINE [Suspect]
     Active Substance: MORPHINE
     Dosage: 0.691 MG, \DAY
     Route: 037
     Dates: start: 20160607
  2. BACLOFEN. [Suspect]
     Active Substance: BACLOFEN
     Indication: MUSCLE SPASTICITY
     Dosage: 174.9 ?G \DAY
     Route: 037
     Dates: start: 20160607
  3. BACLOFEN. [Suspect]
     Active Substance: BACLOFEN
     Indication: MUSCLE SPASTICITY
     Dosage: 96 ?G, \DAY
  4. MORPHINE [Suspect]
     Active Substance: MORPHINE
     Dosage: 0.379 ?G, \DAY

REACTIONS (4)
  - Cerebrospinal fluid leakage [Recovered/Resolved]
  - Device dislocation [Unknown]
  - Myocardial infarction [Unknown]
  - Gait disturbance [Unknown]

NARRATIVE: CASE EVENT DATE: 20160727
